FAERS Safety Report 4727171-1 (Version None)
Quarter: 2005Q3

REPORT INFORMATION
  Report Type: 
  Country: None (occurrence: None)
  Receive Date: 20050726
  Receipt Date: 20050726
  Transmission Date: 20060218
  Serious: Yes (Other)
  Sender: FDA-Public Use
  Company Number: None

PATIENT
  Age: 42 Year
  Sex: Male
  Weight: 89.8 kg

DRUGS (9)
  1. CEPHALEXIN [Suspect]
  2. DIPHENHYDRAMINE HCL [Concomitant]
  3. METHYLPREDNISOLONE NA SUCC [Concomitant]
  4. CEPHALEXIN [Concomitant]
  5. CODEINE 30/ACETAMINOPHEN [Concomitant]
  6. BETAMETHASONE DIPROPIONATE [Concomitant]
  7. CALCIPOTRIENE [Concomitant]
  8. SIMVASTATIN [Concomitant]
  9. MELOXICAM [Concomitant]

REACTIONS (1)
  - RASH [None]
